FAERS Safety Report 15841886 (Version 3)
Quarter: 2019Q2

REPORT INFORMATION
  Report Type: Spontaneous
  Country: IT (occurrence: IT)
  Receive Date: 20190118
  Receipt Date: 20190530
  Transmission Date: 20190711
  Serious: Yes (Hospitalization)
  Sender: FDA-Public Use
  Company Number: PHHY2019IT009438

PATIENT
  Age: 13 Year
  Sex: Female

DRUGS (2)
  1. ILARIS [Suspect]
     Active Substance: CANAKINUMAB
     Indication: BRUCELLOSIS
     Dosage: 150 MG, CYCLIC
     Route: 058
     Dates: start: 20180404
  2. COLCHICINE. [Concomitant]
     Active Substance: COLCHICINE
     Indication: SPLENOMEGALY
     Dosage: UNK
     Route: 065

REACTIONS (3)
  - Tenderness [Recovering/Resolving]
  - Abdominal pain upper [Recovering/Resolving]
  - Urinary tract infection [Recovering/Resolving]

NARRATIVE: CASE EVENT DATE: 20181128
